FAERS Safety Report 25982242 (Version 1)
Quarter: 2025Q4

REPORT INFORMATION
  Report Type: Spontaneous
  Country: CA (occurrence: CA)
  Receive Date: 20251031
  Receipt Date: 20251031
  Transmission Date: 20260118
  Serious: Yes (Other)
  Sender: CELLTRION
  Company Number: CA-CELLTRION INC.-2025CA020261

PATIENT

DRUGS (4)
  1. INFLIXIMAB [Suspect]
     Active Substance: INFLIXIMAB
     Indication: Crohn^s disease
     Dosage: MAINTENANCE - 5 MG/KG - IV (INTRAVENOUS) EVERY 6 WEEKS
     Route: 042
     Dates: start: 20250619
  2. INFLIXIMAB [Suspect]
     Active Substance: INFLIXIMAB
     Dosage: 365MG (MAINTENANCE - 5 MG/KG)  IV (INTRAVENOUS) EVERY 6 WEEKS
     Route: 042
     Dates: start: 20250619
  3. INFLIXIMAB [Suspect]
     Active Substance: INFLIXIMAB
     Dosage: UNK, Q6WEEKS
     Route: 042
     Dates: start: 20250912
  4. INFLIXIMAB [Suspect]
     Active Substance: INFLIXIMAB
     Dosage: 365MG (MAINTENANCE - 5 MG/KG)  IV (INTRAVENOUS) EVERY 6 WEEKS
     Route: 042
     Dates: start: 20250619

REACTIONS (8)
  - Haematochezia [Recovered/Resolved]
  - Gastrointestinal disorder [Recovered/Resolved]
  - Proctalgia [Recovered/Resolved]
  - Mass [Unknown]
  - Abdominal pain [Recovered/Resolved]
  - Diarrhoea [Recovered/Resolved]
  - Inappropriate schedule of product administration [Unknown]
  - Off label use [Unknown]

NARRATIVE: CASE EVENT DATE: 20250930
